FAERS Safety Report 9228998 (Version 1)
Quarter: 2013Q2

REPORT INFORMATION
  Report Type: Spontaneous
  Country: US (occurrence: US)
  Receive Date: 20130412
  Receipt Date: 20130412
  Transmission Date: 20140414
  Serious: No
  Sender: FDA-Public Use
  Company Number: US-ASTRAZENECA-2013SE18619

PATIENT
  Age: 61 Year
  Sex: Female
  Weight: 72.6 kg

DRUGS (1)
  1. NEXIUM [Suspect]
     Indication: GASTROOESOPHAGEAL REFLUX DISEASE
     Route: 048
     Dates: start: 201203

REACTIONS (3)
  - Sleep disorder due to a general medical condition [Recovering/Resolving]
  - Aspiration [Recovering/Resolving]
  - Intentional drug misuse [Unknown]
